FAERS Safety Report 22275327 (Version 1)
Quarter: 2023Q2

REPORT INFORMATION
  Report Type: Spontaneous
  Country: US (occurrence: None)
  Receive Date: 20230502
  Receipt Date: 20230502
  Transmission Date: 20230722
  Serious: No
  Sender: FDA-Public Use
  Company Number: None

PATIENT
  Age: 49 Year
  Sex: Female
  Weight: 126.01 kg

DRUGS (15)
  1. CAPECITABINE [Suspect]
     Active Substance: CAPECITABINE
     Indication: Malignant nipple neoplasm female
     Dosage: FREQUENCY : TWICE A DAY;?
     Route: 048
     Dates: start: 20230406
  2. ACETAMINOPHEN [Concomitant]
     Active Substance: ACETAMINOPHEN
  3. BIOTIN [Concomitant]
     Active Substance: BIOTIN
  4. CLARITIN-D NOS [Concomitant]
     Active Substance: LORATADINE\PSEUDOEPHEDRINE SULFATE
  5. DEXAMETHASONE [Concomitant]
     Active Substance: DEXAMETHASONE
  6. FOLIC ACID [Concomitant]
     Active Substance: FOLIC ACID
  7. GABAPENTIN [Concomitant]
     Active Substance: GABAPENTIN
  8. NORCO [Concomitant]
     Active Substance: ACETAMINOPHEN\HYDROCODONE BITARTRATE
  9. IRON [Concomitant]
     Active Substance: IRON
  10. LORAZEPAM [Concomitant]
     Active Substance: LORAZEPAM
  11. VITAMINS [Concomitant]
     Active Substance: VITAMINS
  12. NAPROXEN [Concomitant]
     Active Substance: NAPROXEN
  13. PROCHLORPERAZINE [Concomitant]
     Active Substance: PROCHLORPERAZINE
  14. VITAMIN B12 [Concomitant]
     Active Substance: CYANOCOBALAMIN
  15. VITAMIN B6 [Concomitant]
     Active Substance: PYRIDOXINE HYDROCHLORIDE

REACTIONS (2)
  - Palmar-plantar erythrodysaesthesia syndrome [None]
  - Pain in extremity [None]
